FAERS Safety Report 10525968 (Version 2)
Quarter: 2014Q4

REPORT INFORMATION
  Report Type: Spontaneous
  Country: US (occurrence: US)
  Receive Date: 20141017
  Receipt Date: 20141103
  Transmission Date: 20150528
  Serious: No
  Sender: FDA-Public Use
  Company Number: US-009507513-1410USA008954

PATIENT
  Age: 43 Year

DRUGS (1)
  1. NEXPLANON [Suspect]
     Active Substance: ETONOGESTREL
     Dosage: UNK
     Route: 059
     Dates: start: 20130903, end: 20141016

REACTIONS (3)
  - Device difficult to use [Recovered/Resolved]
  - Device kink [Unknown]
  - No adverse event [Unknown]

NARRATIVE: CASE EVENT DATE: 20141016
